FAERS Safety Report 8565516-5 (Version None)
Quarter: 2012Q3

REPORT INFORMATION
  Report Type: 
  Country: None (occurrence: None)
  Receive Date: 20120803
  Receipt Date: 20120726
  Transmission Date: 20120928
  Serious: Yes (Other)
  Sender: FDA-Public Use
  Company Number: CA-JNJFOC-20120713089

PATIENT
  Sex: Male
  Weight: 46 kg

DRUGS (1)
  1. REMICADE [Suspect]
     Indication: CROHN'S DISEASE
     Route: 042
     Dates: start: 20100101

REACTIONS (6)
  - HAEMATOCHEZIA [None]
  - CACHEXIA [None]
  - DECREASED APPETITE [None]
  - LISTLESS [None]
  - ASTHENIA [None]
  - WEIGHT DECREASED [None]
